FAERS Safety Report 12162663 (Version 1)
Quarter: 2016Q1

REPORT INFORMATION
  Report Type: Report from Study
  Country: PK (occurrence: PK)
  Receive Date: 20160309
  Receipt Date: 20160309
  Transmission Date: 20160526
  Serious: Yes (Death)
  Sender: FDA-Public Use
  Company Number: PHHY2016PK031139

PATIENT
  Age: 43 Year
  Sex: Female

DRUGS (1)
  1. AFINITOR [Suspect]
     Active Substance: EVEROLIMUS
     Indication: BREAST CANCER
     Dosage: 10 MG, UNK
     Route: 048
     Dates: start: 20141011, end: 20150408

REACTIONS (1)
  - Death [Fatal]

NARRATIVE: CASE EVENT DATE: 20150419
